FAERS Safety Report 8101975-X (Version None)
Quarter: 2012Q1

REPORT INFORMATION
  Report Type: 
  Country: None (occurrence: None)
  Receive Date: 20120131
  Receipt Date: 20120116
  Transmission Date: 20120608
  Serious: Yes (Other)
  Sender: FDA-Public Use
  Company Number: CA-JNJFOC-20110811354

PATIENT
  Sex: Male
  Weight: 114 kg

DRUGS (1)
  1. REMICADE [Suspect]
     Indication: CROHN'S DISEASE
     Route: 042
     Dates: start: 20080801

REACTIONS (5)
  - GASTROINTESTINAL PAIN [None]
  - HYPERTENSION [None]
  - EAR INFECTION [None]
  - EAR OPERATION [None]
  - JOINT INJURY [None]
